FAERS Safety Report 14893205 (Version 4)
Quarter: 2018Q2

REPORT INFORMATION
  Report Type: Spontaneous
  Country: US (occurrence: US)
  Receive Date: 20180514
  Receipt Date: 20180611
  Transmission Date: 20180711
  Serious: No
  Sender: FDA-Public Use
  Company Number: US-MERZ NORTH AMERICA, INC.-18MRZ-00243

PATIENT
  Sex: Female

DRUGS (2)
  1. XEOMIN [Suspect]
     Active Substance: INCOBOTULINUMTOXINA
     Indication: SKIN WRINKLING
     Dosage: 16 UNITS TO GLABELLA AND 8 UNITS TO EACH CROW^S FEET
     Dates: start: 20180420, end: 20180420
  2. XEOMIN [Suspect]
     Active Substance: INCOBOTULINUMTOXINA
     Indication: SKIN WRINKLING

REACTIONS (7)
  - Eye pain [Unknown]
  - Hypertension [Unknown]
  - Headache [Recovering/Resolving]
  - Muscle spasms [Unknown]
  - Administration related reaction [Unknown]
  - Swelling [Unknown]
  - Eyelid pain [Unknown]
